FAERS Safety Report 15474616 (Version 1)
Quarter: 2018Q4

REPORT INFORMATION
  Report Type: Spontaneous
  Country: IT (occurrence: IT)
  Receive Date: 20181008
  Receipt Date: 20181008
  Transmission Date: 20190205
  Serious: Yes (Hospitalization, Other)
  Sender: FDA-Public Use
  Company Number: IT-MYLANLABS-2018M1056331

PATIENT
  Age: 42 Year
  Sex: Female

DRUGS (4)
  1. RIFAMPICIN [Suspect]
     Active Substance: RIFAMPIN
     Indication: INTESTINAL TUBERCULOSIS
     Dosage: UNK
     Route: 065
  2. RIFAMPICIN [Suspect]
     Active Substance: RIFAMPIN
     Dosage: 900 MG, QD
     Route: 065
     Dates: start: 197802
  3. RIFAMPICIN [Suspect]
     Active Substance: RIFAMPIN
     Dosage: 4 DAYS A WEEK
     Route: 065
  4. ISONIAZID. [Concomitant]
     Active Substance: ISONIAZID
     Indication: PRODUCT USED FOR UNKNOWN INDICATION
     Dosage: 400 MG, QD
     Route: 065
     Dates: start: 1978

REACTIONS (43)
  - Anuria [Recovered/Resolved]
  - Blood urea increased [Recovered/Resolved]
  - Blood lactate dehydrogenase increased [Recovered/Resolved]
  - Peripheral coldness [Recovered/Resolved]
  - Prothrombin time prolonged [Recovered/Resolved]
  - Faeces discoloured [Recovered/Resolved]
  - Haemoglobinuria [Recovered/Resolved]
  - Blood creatinine increased [Recovered/Resolved]
  - Blood pressure decreased [Recovered/Resolved]
  - Myalgia [Recovered/Resolved]
  - Jaundice [Recovered/Resolved]
  - Cardiac murmur [Recovered/Resolved]
  - Blood creatine phosphokinase increased [Recovered/Resolved]
  - Blood fibrinogen decreased [Recovered/Resolved]
  - Arthralgia [Recovered/Resolved]
  - Acute kidney injury [Recovered/Resolved]
  - Activated partial thromboplastin time prolonged [Recovered/Resolved]
  - Petechiae [Recovered/Resolved]
  - Pulse abnormal [Recovered/Resolved]
  - Haemolytic anaemia [Recovered/Resolved]
  - Pain [Recovered/Resolved]
  - Platelet count decreased [Recovered/Resolved]
  - Haemoglobin decreased [Recovered/Resolved]
  - Creatinine renal clearance decreased [Recovered/Resolved]
  - Ecchymosis [Recovered/Resolved]
  - Alpha hydroxybutyrate dehydrogenase increased [Recovered/Resolved]
  - Poikilocytosis [Recovered/Resolved]
  - Abdominal pain upper [Recovered/Resolved]
  - Leukocytosis [Recovered/Resolved]
  - Reticulocytopenia [Recovered/Resolved]
  - Transaminases increased [Recovered/Resolved]
  - Oedema peripheral [Recovered/Resolved]
  - Disseminated intravascular coagulation [Recovered/Resolved]
  - Drug hypersensitivity [Recovered/Resolved]
  - Headache [Recovered/Resolved]
  - Chills [Recovered/Resolved]
  - Abdominal rigidity [Recovered/Resolved]
  - Immunoglobulins increased [Recovered/Resolved]
  - Pallor [Recovered/Resolved]
  - Hyperbilirubinaemia [Recovered/Resolved]
  - Urea renal clearance decreased [Recovered/Resolved]
  - Malaise [Recovered/Resolved]
  - Pyrexia [Recovered/Resolved]
